FAERS Safety Report 5965132-5 (Version None)
Quarter: 2008Q4

REPORT INFORMATION
  Report Type: 
  Country: None (occurrence: None)
  Receive Date: 20081121
  Receipt Date: 20081121
  Transmission Date: 20090506
  Serious: No
  Sender: FDA-Public Use
  Company Number: None

PATIENT
  Age: 68 Year
  Sex: Female
  Weight: 66.2252 kg

DRUGS (1)
  1. CELEBREX [Suspect]
     Indication: ARTHRITIS
     Dosage: 1 CAPSULE 1X DAILY PO
     Route: 048
     Dates: start: 20070308, end: 20081120

REACTIONS (3)
  - HYPERTENSION [None]
  - HYPERTENSIVE NEPHROPATHY [None]
  - RENAL FAILURE CHRONIC [None]
